FAERS Safety Report 5546777-3 (Version None)
Quarter: 2007Q4

REPORT INFORMATION
  Report Type: 
  Country: None (occurrence: None)
  Receive Date: 20071126
  Receipt Date: 20061127
  Transmission Date: 20080405
  Serious: Yes (Hospitalization, Other)
  Sender: FDA-Public Use
  Company Number: 32512

PATIENT
  Age: 64 Year
  Sex: Female

DRUGS (8)
  1. ADRIAMYCIN PFS [Suspect]
     Indication: BREAST CANCER
     Dosage: 100MG/IV
     Route: 042
     Dates: start: 20060925, end: 20061024
  2. LIPITOR [Concomitant]
  3. CELEBREX [Concomitant]
  4. COZAAR [Concomitant]
  5. HYDROCHLOROTHIAZIDE [Concomitant]
  6. ASA (ACETYLASLICYLIC ACID) [Concomitant]
  7. EFFEXOR (VENALFAXINE HYDROCHLORIDE) [Concomitant]
  8. ARANESP [Concomitant]

REACTIONS (2)
  - APLASTIC ANAEMIA [None]
  - FEBRILE NEUTROPENIA [None]
